FAERS Safety Report 8610790-X (Version None)
Quarter: 2012Q3

REPORT INFORMATION
  Report Type: 
  Country: None (occurrence: None)
  Receive Date: 20120822
  Receipt Date: 20120809
  Transmission Date: 20120928
  Serious: Yes (Hospitalization, Other)
  Sender: FDA-Public Use
  Company Number: US-ELI_LILLY_AND_COMPANY-US201207004887

PATIENT
  Sex: Female

DRUGS (11)
  1. ALEVE [Concomitant]
     Dosage: UNK
  2. CALCIUM [Concomitant]
     Dosage: 600 MG, BID
  3. LOSARTAN POTASSIUM [Concomitant]
     Dosage: UNK
  4. ALENDRONATE SODIUM [Concomitant]
     Dosage: UNK
  5. FORTEO [Suspect]
     Indication: OSTEOPOROSIS
     Dosage: 20 UG, QD
     Dates: start: 20120709, end: 20120720
  6. TYLENOL                                 /SCH/ [Concomitant]
     Dosage: UNK
  7. BIOTIN [Concomitant]
     Dosage: UNK
  8. ASPIRIN [Concomitant]
     Dosage: 81 MG, QOD
  9. FORTEO [Suspect]
     Dosage: 20 UG, QD
  10. LIPITOR [Concomitant]
     Dosage: 25 MG, QD
  11. GLUCOSAMINE + CHONDROITIN [Concomitant]
     Dosage: UNK

REACTIONS (19)
  - LIMB DISCOMFORT [None]
  - HYPERHIDROSIS [None]
  - FALL [None]
  - PALLOR [None]
  - HYPOTENSION [None]
  - DIZZINESS [None]
  - PAIN [None]
  - SYNCOPE [None]
  - ANXIETY [None]
  - DISCOMFORT [None]
  - MOBILITY DECREASED [None]
  - INJECTION SITE ERYTHEMA [None]
  - BACK INJURY [None]
  - SPINAL FRACTURE [None]
  - AGITATION [None]
  - PAIN IN EXTREMITY [None]
  - EYE MOVEMENT DISORDER [None]
  - SKIN HAEMORRHAGE [None]
  - DRUG DOSE OMISSION [None]
